FAERS Safety Report 12172221 (Version 3)
Quarter: 2016Q1

REPORT INFORMATION
  Report Type: Spontaneous
  Country: JP (occurrence: JP)
  Receive Date: 20160311
  Receipt Date: 20160328
  Transmission Date: 20160526
  Serious: Yes (Death, Other)
  Sender: FDA-Public Use
  Company Number: JP-SEATTLE GENETICS-2016SGN00342

PATIENT

DRUGS (7)
  1. NEOMALLERMIN TR [Concomitant]
     Indication: PREMEDICATION
     Dosage: 6 MG, QD
     Route: 048
     Dates: start: 20160128, end: 20160130
  2. NEOPHAGEN                          /00518801/ [Concomitant]
     Active Substance: CYSTEINE\GLYCINE\GLYCYRRHIZIN
     Indication: HEPATIC FUNCTION ABNORMAL
     Dosage: 60 ML, QD
     Route: 041
     Dates: start: 20160123, end: 20160129
  3. ADCETRIS [Suspect]
     Active Substance: BRENTUXIMAB VEDOTIN
     Indication: HODGKIN^S DISEASE
     Dosage: 80 MG, Q21D
     Route: 041
     Dates: start: 20160128, end: 20160128
  4. NAIXAN                             /00256201/ [Concomitant]
     Active Substance: NAPROXEN
     Indication: PYREXIA
     Dosage: 100 MG, TID
     Route: 048
     Dates: start: 20160128, end: 20160130
  5. CALONAL [Concomitant]
     Active Substance: ACETAMINOPHEN
     Indication: PYREXIA
     Dosage: 200 MG, QID
     Route: 048
     Dates: start: 20160128, end: 20160130
  6. CEFEPIME HYDROCHLORIDE. [Concomitant]
     Active Substance: CEFEPIME HYDROCHLORIDE
     Indication: PYREXIA
     Dosage: 2 G, BID
     Route: 041
     Dates: start: 20160122, end: 20160130
  7. DEXART [Concomitant]
     Active Substance: DEXAMETHASONE SODIUM PHOSPHATE
     Indication: PREMEDICATION
     Dosage: 1.65 MG, QD
     Route: 041
     Dates: start: 20160128, end: 20160128

REACTIONS (4)
  - Hepatic failure [Fatal]
  - Coagulopathy [Fatal]
  - Condition aggravated [Fatal]
  - Hepatic function abnormal [Fatal]

NARRATIVE: CASE EVENT DATE: 20160128
